FAERS Safety Report 8020413-9 (Version None)
Quarter: 2012Q1

REPORT INFORMATION
  Report Type: 
  Country: None (occurrence: None)
  Receive Date: 20120103
  Receipt Date: 20111223
  Transmission Date: 20120608
  Serious: Yes (Disabling)
  Sender: FDA-Public Use
  Company Number: CA-US-EMD SERONO, INC.-7096368

PATIENT
  Sex: Female

DRUGS (1)
  1. REBIF [Suspect]
     Indication: MULTIPLE SCLEROSIS
     Dosage: REBIF MONODOSE
     Route: 058
     Dates: start: 20110511, end: 20110905

REACTIONS (3)
  - MUSCULOSKELETAL STIFFNESS [None]
  - BLINDNESS [None]
  - NASAL CONGESTION [None]
